FAERS Safety Report 17873328 (Version 3)
Quarter: 2021Q1

REPORT INFORMATION
  Report Type: Report from Study
  Country: None (occurrence: CA)
  Receive Date: 20200608
  Receipt Date: 20210203
  Transmission Date: 20210419
  Serious: Yes (Other)
  Sender: FDA-Public Use
  Company Number: CA-ABBVIE-20K-028-3267009-00

PATIENT
  Age: 63 Year
  Sex: Female

DRUGS (2)
  1. HUMIRA [Suspect]
     Active Substance: ADALIMUMAB
     Indication: CROHN^S DISEASE
     Route: 058
     Dates: start: 20160218
  2. HUMIRA [Suspect]
     Active Substance: ADALIMUMAB
     Route: 058

REACTIONS (19)
  - Blindness [Unknown]
  - Adverse food reaction [Unknown]
  - Faeces discoloured [Unknown]
  - Diarrhoea [Unknown]
  - Colour blindness acquired [Unknown]
  - Stress [Not Recovered/Not Resolved]
  - Gastrointestinal disorder [Unknown]
  - Crohn^s disease [Not Recovered/Not Resolved]
  - Deep vein thrombosis [Not Recovered/Not Resolved]
  - Therapeutic response shortened [Unknown]
  - Abdominal pain [Unknown]
  - Asthma [Unknown]
  - Thrombosis [Recovered/Resolved]
  - Groin pain [Unknown]
  - Feeling abnormal [Unknown]
  - Cataract [Unknown]
  - Inflammatory marker increased [Unknown]
  - Injection site pain [Unknown]
  - Thrombosis [Unknown]

NARRATIVE: CASE EVENT DATE: 201805
